FAERS Safety Report 5121460-7 (Version None)
Quarter: 2006Q4

REPORT INFORMATION
  Report Type: 
  Country: None (occurrence: None)
  Receive Date: 20061003
  Receipt Date: 20060921
  Transmission Date: 20070319
  Serious: Yes (Hospitalization)
  Sender: FDA-Public Use
  Company Number: 2006114361

PATIENT
  Age: 62 Year
  Sex: Female

DRUGS (3)
  1. DOXORUBICIN HCL [Suspect]
     Indication: OVARIAN CANCER
     Dosage: INTRAVENOUS
     Route: 042
     Dates: start: 20060217
  2. NIFEDIPINE [Suspect]
     Indication: ESSENTIAL HYPERTENSION
     Dosage: ORAL
     Route: 048
  3. ZOFRAN [Suspect]
     Dosage: INTRAVENOUS
     Route: 042
     Dates: start: 20060406

REACTIONS (3)
  - DERMATITIS BULLOUS [None]
  - PEMPHIGOID [None]
  - SKIN LESION [None]
